FAERS Safety Report 4585132-X (Version None)
Quarter: 2005Q1

REPORT INFORMATION
  Report Type: 
  Country: None (occurrence: None)
  Receive Date: 20050217
  Receipt Date: 20050106
  Transmission Date: 20050727
  Serious: No
  Sender: FDA-Public Use
  Company Number: US-GLAXOSMITHKLINE-A0539672A

PATIENT
  Age: 25 Year
  Sex: Female

DRUGS (4)
  1. WELLBUTRIN [Suspect]
     Dosage: 150MG PER DAY
     Route: 048
     Dates: start: 20050101
  2. CENTRUM [Concomitant]
  3. VITAMIN C [Concomitant]
  4. TYLENOL COLD + FLU [Concomitant]

REACTIONS (2)
  - HEART RATE INCREASED [None]
  - VISION BLURRED [None]
